FAERS Safety Report 4831152-7 (Version None)
Quarter: 2005Q4

REPORT INFORMATION
  Report Type: 
  Country: None (occurrence: None)
  Receive Date: 20051114
  Receipt Date: 20050928
  Transmission Date: 20060501
  Serious: Yes (Hospitalization)
  Sender: FDA-Public Use
  Company Number: DSA_27209_2005

PATIENT
  Age: 41 Year
  Sex: Female

DRUGS (3)
  1. TAVOR [Suspect]
     Dosage: 7 MG ONCE PO
     Route: 048
     Dates: start: 20050928, end: 20050928
  2. ATOSIL [Suspect]
     Dosage: 1600 MG ONCE PO
     Route: 048
     Dates: start: 20050928, end: 20050928
  3. LEPONEX [Suspect]
     Dosage: 1000 MG ONCE PO
     Route: 048
     Dates: start: 20050928, end: 20050928

REACTIONS (4)
  - BOWEL SOUNDS ABNORMAL [None]
  - FATIGUE [None]
  - MULTIPLE DRUG OVERDOSE INTENTIONAL [None]
  - TACHYCARDIA [None]
